FAERS Safety Report 5216529-2 (Version None)
Quarter: 2007Q1

REPORT INFORMATION
  Report Type: 
  Country: None (occurrence: None)
  Receive Date: 20070118
  Receipt Date: 20070109
  Transmission Date: 20070707
  Serious: Yes (Death)
  Sender: FDA-Public Use
  Company Number: B0454089A

PATIENT
  Age: 57 Year
  Sex: Male

DRUGS (2)
  1. EPIVIR-HBV [Suspect]
     Indication: HEPATITIS B VIRUS
     Dosage: 100 MG/ PER DAY / ORAL
     Route: 048
  2. CANCER CHEMOTHERAPY [Concomitant]

REACTIONS (16)
  - ABDOMINAL TENDERNESS [None]
  - CHROMOSOMAL MUTATION [None]
  - COAGULOPATHY [None]
  - COMA [None]
  - CONFUSIONAL STATE [None]
  - ENCEPHALOPATHY [None]
  - HEPATIC NECROSIS [None]
  - HEPATITIS B [None]
  - INTERNATIONAL NORMALISED RATIO INCREASED [None]
  - LEUKOCYTOSIS [None]
  - LYMPHADENOPATHY [None]
  - ORAL INTAKE REDUCED [None]
  - PRURITUS [None]
  - REFUSAL OF TREATMENT BY PATIENT [None]
  - RESPIRATORY FAILURE [None]
  - THROMBOCYTOPENIA [None]
